FAERS Safety Report 8387290-8 (Version None)
Quarter: 2012Q2

REPORT INFORMATION
  Report Type: 
  Country: None (occurrence: None)
  Receive Date: 20120525
  Receipt Date: 20120515
  Transmission Date: 20120825
  Serious: Yes (Hospitalization)
  Sender: FDA-Public Use
  Company Number: SE-TEVA-336626ISR

PATIENT
  Sex: Male

DRUGS (8)
  1. ASPIRIN [Concomitant]
  2. AMLODIPINE BESYLATE [Suspect]
  3. NITROGLYCERIN [Suspect]
  4. NOVOLOG MIX 70/30 [Suspect]
     Indication: TYPE 2 DIABETES MELLITUS
  5. CALCIUM ANTAGONISTS [Concomitant]
  6. SAXAGLIPTIN/PLACEBO [Suspect]
     Indication: TYPE 2 DIABETES MELLITUS
     Dates: start: 20110408
  7. RAMIPRIL [Suspect]
  8. METOPROLOL [Suspect]

REACTIONS (2)
  - SYNCOPE [None]
  - PNEUMONIA [None]
